FAERS Safety Report 12178965 (Version 1)
Quarter: 2016Q1

REPORT INFORMATION
  Report Type: Spontaneous
  Country: US (occurrence: US)
  Receive Date: 20160314
  Receipt Date: 20160314
  Transmission Date: 20160526
  Serious: No
  Sender: FDA-Public Use
  Company Number: US-SA-2016SA032646

PATIENT
  Sex: Female

DRUGS (4)
  1. TOUJEO [Suspect]
     Active Substance: INSULIN GLARGINE
     Indication: OEDEMA
     Dosage: DOSE:20 UNIT(S)
     Route: 058
     Dates: start: 20150929, end: 20160105
  2. SOLOSTAR [Concomitant]
     Active Substance: DEVICE
     Indication: DYSPNOEA
     Dates: start: 20150929, end: 20160105
  3. TOUJEO [Suspect]
     Active Substance: INSULIN GLARGINE
     Indication: DYSPNOEA
     Dosage: DOSE:20 UNIT(S)
     Route: 058
     Dates: start: 20150929, end: 20160105
  4. SOLOSTAR [Concomitant]
     Active Substance: DEVICE
     Indication: OEDEMA
     Dates: start: 20150929, end: 20160105

REACTIONS (1)
  - Product use issue [Unknown]
